FAERS Safety Report 9744105 (Version 2)
Quarter: 2013Q4

REPORT INFORMATION
  Report Type: Other
  Country: JP (occurrence: JP)
  Receive Date: 20131210
  Receipt Date: 20131220
  Transmission Date: 20140711
  Serious: Yes (Other)
  Sender: FDA-Public Use
  Company Number: JP-BRISTOL-MYERS SQUIBB COMPANY-19886662

PATIENT
  Age: 74 Year
  Sex: Male

DRUGS (4)
  1. ERBITUX SOLN FOR INF 5MG/ML [Suspect]
     Indication: COLON CANCER
     Route: 041
     Dates: start: 20120724, end: 20120828
  2. FLUOROURACIL [Concomitant]
     Indication: COLON CANCER
     Route: 041
     Dates: start: 20120724
  3. LEUCOVORIN [Concomitant]
     Indication: COLON CANCER
     Route: 048
     Dates: start: 20120724
  4. OXALIPLATIN [Concomitant]
     Indication: COLON CANCER
     Route: 041
     Dates: start: 20120724

REACTIONS (1)
  - Insulin autoimmune syndrome [Recovering/Resolving]
